FAERS Safety Report 21499015 (Version 1)
Quarter: 2022Q4

REPORT INFORMATION
  Report Type: Spontaneous
  Country: US (occurrence: None)
  Receive Date: 20221022
  Receipt Date: 20221022
  Transmission Date: 20230112
  Serious: Yes (Other)
  Sender: FDA-Public Use
  Company Number: None

PATIENT
  Age: 64 Year
  Sex: Female
  Weight: 81 kg

DRUGS (4)
  1. AMLODIPINE [Suspect]
     Active Substance: AMLODIPINE BESYLATE
     Indication: Blood pressure measurement
     Dosage: FREQUENCY : AT BEDTIME;?
     Route: 048
     Dates: start: 20220810, end: 20221010
  2. LISINOPRIL [Suspect]
     Active Substance: LISINOPRIL
  3. IBUPROFEN [Concomitant]
     Active Substance: IBUPROFEN
  4. DIPHENHYDRAMINE [Concomitant]
     Active Substance: DIPHENHYDRAMINE

REACTIONS (11)
  - Palpitations [None]
  - Feeling abnormal [None]
  - Joint swelling [None]
  - Peripheral swelling [None]
  - Mental disorder [None]
  - Lethargy [None]
  - General physical condition abnormal [None]
  - Therapy cessation [None]
  - Skin mass [None]
  - Walking aid user [None]
  - Back pain [None]

NARRATIVE: CASE EVENT DATE: 20220901
